FAERS Safety Report 9111667 (Version 1)
Quarter: 2013Q1

REPORT INFORMATION
  Report Type: Spontaneous
  Country: US (occurrence: US)
  Receive Date: 20130219
  Receipt Date: 20130219
  Transmission Date: 20140127
  Serious: No
  Sender: FDA-Public Use
  Company Number: US-BRISTOL-MYERS SQUIBB COMPANY-16349672

PATIENT
  Age: 60 Year
  Sex: Female
  Weight: 64 kg

DRUGS (7)
  1. ORENCIA FOR INJ [Suspect]
     Indication: RHEUMATOID ARTHRITIS
     Dosage: 1 DF= 125MG/ML
     Route: 058
     Dates: start: 20120113, end: 20120113
  2. MELOXICAM [Concomitant]
     Dosage: 1DF: 1.5 UNS
  3. CRESTOR [Concomitant]
     Dosage: 1DF: 40 UNS
  4. ACETYLSALICYLIC ACID [Concomitant]
  5. METHOTREXATE [Concomitant]
  6. SYNTHROID [Concomitant]
     Dosage: 1DF: 0.075 UNS
  7. PLAQUENIL [Concomitant]
     Dosage: 1DF:NOT CLEAR

REACTIONS (3)
  - Tachycardia [Recovered/Resolved]
  - Dizziness [Recovered/Resolved]
  - Dry mouth [Recovered/Resolved]
